FAERS Safety Report 8818416 (Version 3)
Quarter: 2012Q4

REPORT INFORMATION
  Report Type: 
  Country: US (occurrence: US)
  Receive Date: 20121001
  Receipt Date: 20121218
  Transmission Date: 20130627
  Serious: Yes (Death, Life-Threatening, Hospitalization, Other)
  Sender: FDA-Public Use
  Company Number: US-B.I. PHARMACEUTICALS,INC./RIDGEFIELD-2012-BP-23650BP

PATIENT
  Age: 90 Year
  Sex: Male
  Weight: 81.65 kg

DRUGS (4)
  1. PRADAXA [Suspect]
     Indication: ATRIAL FIBRILLATION
     Dosage: 300 mg
     Route: 048
     Dates: end: 2012
  2. ASPIRIN [Suspect]
  3. METOPROLOL [Concomitant]
  4. CRESTOR [Concomitant]

REACTIONS (6)
  - Spinal epidural haemorrhage [Fatal]
  - Extradural haematoma [Fatal]
  - Myocardial infarction [Recovered/Resolved]
  - Cervical vertebral fracture [Unknown]
  - Fall [Recovered/Resolved]
  - Paraplegia [Unknown]
